FAERS Safety Report 6519122-4 (Version None)
Quarter: 2009Q4

REPORT INFORMATION
  Report Type: 
  Country: None (occurrence: None)
  Receive Date: 20091228
  Receipt Date: 20091214
  Transmission Date: 20100525
  Serious: Yes (Other)
  Sender: FDA-Public Use
  Company Number: ES-PFIZER INC-2007083563

PATIENT
  Age: 61 Year

DRUGS (2)
  1. SUNITINIB MALATE [Suspect]
     Indication: BREAST CANCER METASTATIC
     Dosage: 37.5 MG, 1X/DAY
     Route: 048
     Dates: start: 20070724, end: 20070928
  2. TRASTUZUMAB [Suspect]
     Indication: BREAST CANCER METASTATIC
     Dosage: 2 MG/KG, WEEKLY
     Route: 042
     Dates: start: 20070724

REACTIONS (1)
  - IDIOPATHIC THROMBOCYTOPENIC PURPURA [None]
